FAERS Safety Report 14330337 (Version 5)
Quarter: 2018Q3

REPORT INFORMATION
  Report Type: Report from Study
  Country: JP (occurrence: JP)
  Receive Date: 20171227
  Receipt Date: 20180729
  Transmission Date: 20181010
  Serious: Yes (Other)
  Sender: FDA-Public Use
  Company Number: PHJP2017JP034833

PATIENT
  Age: 66 Year
  Sex: Male

DRUGS (4)
  1. FARYDAK [Suspect]
     Active Substance: PANOBINOSTAT
     Indication: PLASMA CELL MYELOMA
     Dosage: 20 MG, QD (5 ADMINISTRATIONS PER CYCLE)
     Route: 048
     Dates: start: 20160121, end: 20160210
  2. FARYDAK [Suspect]
     Active Substance: PANOBINOSTAT
     Dosage: 20 MG, QD
     Route: 048
     Dates: start: 20160211, end: 20160222
  3. BORTEZOMIB. [Suspect]
     Active Substance: BORTEZOMIB
     Indication: PLASMA CELL MYELOMA
     Dosage: 1.3 MG/M2, QW2
     Route: 058
     Dates: start: 20160121, end: 20160210
  4. DEXAMETHASONE. [Suspect]
     Active Substance: DEXAMETHASONE
     Indication: PLASMA CELL MYELOMA
     Dosage: UNK
     Route: 065
     Dates: start: 20160121, end: 20160210

REACTIONS (12)
  - Plasma cells present [Unknown]
  - Neutrophil count decreased [Unknown]
  - Haemoglobin decreased [Unknown]
  - Tumour lysis syndrome [Recovering/Resolving]
  - Bone marrow failure [Recovering/Resolving]
  - Disseminated intravascular coagulation [Recovering/Resolving]
  - Platelet count decreased [Not Recovered/Not Resolved]
  - Anaemia [Unknown]
  - Plasma cell myeloma [Recovering/Resolving]
  - Malignant neoplasm progression [Recovering/Resolving]
  - Bone marrow infiltration [Unknown]
  - Purpura [Unknown]

NARRATIVE: CASE EVENT DATE: 20160125
